FAERS Safety Report 9907306 (Version 1)
Quarter: 2014Q1

REPORT INFORMATION
  Report Type: Spontaneous
  Country: NL (occurrence: NL)
  Receive Date: 20140218
  Receipt Date: 20140218
  Transmission Date: 20141002
  Serious: Yes (Life-Threatening, Hospitalization)
  Sender: FDA-Public Use
  Company Number: NL-MYLANLABS-2014S1002645

PATIENT
  Age: 64 Year
  Sex: Male

DRUGS (1)
  1. TERBINAFINE [Suspect]
     Indication: ONYCHOMYCOSIS
     Dosage: 1 KEER PER DAG 1 STUK(S)
     Route: 048
     Dates: start: 20131126, end: 20131208

REACTIONS (2)
  - Depression [Recovered/Resolved with Sequelae]
  - Catatonia [Recovered/Resolved with Sequelae]
